FAERS Safety Report 7007020-1 (Version None)
Quarter: 2010Q3

REPORT INFORMATION
  Report Type: 
  Country: None (occurrence: None)
  Receive Date: 20100922
  Receipt Date: 20100915
  Transmission Date: 20110219
  Serious: Yes (Other)
  Sender: FDA-Public Use
  Company Number: US-SANOFI-AVENTIS-2010SA008891

PATIENT
  Age: 59 Year
  Sex: Male
  Weight: 71.14 kg

DRUGS (19)
  1. ELOXATIN [Suspect]
     Indication: COLON CANCER
     Dosage: 176 MG EVERY OTHER WEEK
     Route: 041
     Dates: start: 20090811, end: 20090811
  2. ELOXATIN [Suspect]
     Dosage: EVERY OTHER WEEK
     Route: 041
     Dates: start: 20100111, end: 20100111
  3. ELOXATIN [Suspect]
     Dosage: EVERY OTHER WEEK
     Route: 041
     Dates: start: 20091116, end: 20091116
  4. LEUCOVORIN CALCIUM [Suspect]
     Indication: COLON CANCER
     Route: 065
     Dates: start: 20090811
  5. FLUOROURACIL [Suspect]
     Indication: COLON CANCER
     Route: 065
     Dates: start: 20090811
  6. HYDROCHLOROTHIAZIDE [Concomitant]
  7. FLUCONAZOLE [Concomitant]
  8. FLEXERIL [Concomitant]
  9. SODIUM DIATRIZOATE [Concomitant]
  10. HYDROCODONE BITARTRATE + ACETAMINOPHEN [Concomitant]
  11. SIMETHICONE [Concomitant]
  12. ONDANSETRON HYDROCHLORIDE [Concomitant]
  13. DEXAMETHASONE [Concomitant]
  14. ATROPINE SULFATE/DIPHENOXYLATE HYDROCHLORIDE [Concomitant]
  15. NEUPOGEN [Concomitant]
  16. OMEPRAZOLE [Concomitant]
  17. OXYCODONE HYDROCHLORIDE [Concomitant]
  18. PROCHLORPERAZINE MALEATE [Concomitant]
  19. ALL OTHER THERAPEUTIC PRODUCTS [Concomitant]

REACTIONS (6)
  - DIAPHRAGMATIC PARALYSIS [None]
  - DIARRHOEA [None]
  - DYSPNOEA [None]
  - NAUSEA [None]
  - NECK PAIN [None]
  - STOMATITIS [None]
